FAERS Safety Report 26216095 (Version 1)
Quarter: 2025Q4

REPORT INFORMATION
  Report Type: Spontaneous
  Country: RU (occurrence: RU)
  Receive Date: 20251231
  Receipt Date: 20251231
  Transmission Date: 20260117
  Serious: Yes (Death, Other)
  Sender: ROCHE
  Company Number: RU-ROCHE-10000470541

PATIENT
  Age: 39 Year
  Sex: Male

DRUGS (1)
  1. ATEZOLIZUMAB [Suspect]
     Active Substance: ATEZOLIZUMAB
     Indication: Adenocarcinoma
     Dates: start: 20220225, end: 20220419

REACTIONS (2)
  - Disease progression [Unknown]
  - Death [Fatal]

NARRATIVE: CASE EVENT DATE: 20230523
